FAERS Safety Report 8321692-0 (Version None)
Quarter: 2012Q2

REPORT INFORMATION
  Report Type: 
  Country: None (occurrence: None)
  Receive Date: 20120430
  Receipt Date: 20091106
  Transmission Date: 20120825
  Serious: No
  Sender: FDA-Public Use
  Company Number: US-TEVA-2009014590

PATIENT
  Sex: Male
  Weight: 129.39 kg

DRUGS (7)
  1. HYDROCHLOROTHIAZIDE [Concomitant]
     Indication: HYPERTENSION
     Dosage: 25 MILLIGRAM;
     Route: 048
     Dates: start: 20050101
  2. LUVOX [Concomitant]
     Indication: DEPRESSION
     Dosage: 300 MILLIGRAM;
     Route: 048
     Dates: start: 20060101
  3. LUVOX [Concomitant]
     Indication: OBSESSIVE-COMPULSIVE DISORDER
  4. SERZONE [Concomitant]
     Indication: DEPRESSION
     Dosage: 300 MILLIGRAM;
     Route: 048
     Dates: start: 20020101
  5. SERZONE [Concomitant]
     Indication: OBSESSIVE-COMPULSIVE DISORDER
  6. INDERAL [Concomitant]
     Indication: HYPERTENSION
     Dosage: 40 MILLIGRAM;
     Route: 048
     Dates: start: 20080101
  7. NUVIGIL [Suspect]
     Indication: SLEEP APNOEA SYNDROME
     Dosage: 250 MILLIGRAM;
     Route: 048
     Dates: start: 20090701

REACTIONS (1)
  - THERAPEUTIC RESPONSE UNEXPECTED [None]
